FAERS Safety Report 8513645-4 (Version None)
Quarter: 2012Q3

REPORT INFORMATION
  Report Type: 
  Country: None (occurrence: None)
  Receive Date: 20120717
  Receipt Date: 20120710
  Transmission Date: 20120928
  Serious: No
  Sender: FDA-Public Use
  Company Number: US-PFIZER INC-2012165423

PATIENT
  Sex: Female
  Weight: 79 kg

DRUGS (3)
  1. LYRICA [Suspect]
     Indication: PAIN IN EXTREMITY
     Dosage: 75 MG, 1X/DAY
     Route: 048
     Dates: start: 20120509, end: 20120501
  2. LYRICA [Suspect]
     Indication: BURNING SENSATION
     Dosage: 25 MG, 1X/DAY
     Route: 048
     Dates: start: 20120501, end: 20120605
  3. LYRICA [Suspect]
     Indication: NEURALGIA

REACTIONS (12)
  - NASAL DRYNESS [None]
  - LETHARGY [None]
  - MIDDLE INSOMNIA [None]
  - IRRITABILITY [None]
  - PALPITATIONS [None]
  - DRY EYE [None]
  - OEDEMA PERIPHERAL [None]
  - DYSPNOEA [None]
  - DRY THROAT [None]
  - NERVOUSNESS [None]
  - FATIGUE [None]
  - OFF LABEL USE [None]
